FAERS Safety Report 12542014 (Version 3)
Quarter: 2017Q1

REPORT INFORMATION
  Report Type: Spontaneous
  Country: US (occurrence: US)
  Receive Date: 20160708
  Receipt Date: 20170104
  Transmission Date: 20170428
  Serious: No
  Sender: FDA-Public Use
  Company Number: US-ACTELION-A-US2016-138718

PATIENT
  Age: 65 Year
  Sex: Female

DRUGS (2)
  1. AMLODIPINE [Concomitant]
     Active Substance: AMLODIPINE BESYLATE
  2. VALCHLOR [Suspect]
     Active Substance: MECHLORETHAMINE
     Indication: MYCOSIS FUNGOIDES
     Dosage: UNK
     Route: 061
     Dates: start: 20160429, end: 2016

REACTIONS (7)
  - Skin disorder [Unknown]
  - Blister [Unknown]
  - Disease progression [Not Recovered/Not Resolved]
  - Erythema [Unknown]
  - Wound secretion [Not Recovered/Not Resolved]
  - Neoplasm skin [Unknown]
  - Drug ineffective [Unknown]
